FAERS Safety Report 4785395-1 (Version None)
Quarter: 2005Q3

REPORT INFORMATION
  Report Type: 
  Country: None (occurrence: None)
  Receive Date: 20050929
  Receipt Date: 20050916
  Transmission Date: 20060218
  Serious: Yes (Life-Threatening, Hospitalization, Other)
  Sender: FDA-Public Use
  Company Number: 2005125825

PATIENT
  Age: 52 Year
  Sex: Female

DRUGS (6)
  1. LIPITOR [Suspect]
     Indication: HYPERCHOLESTEROLAEMIA
     Dosage: ORAL
     Route: 048
     Dates: start: 20040101
  2. ESTRADERM [Suspect]
     Indication: MENOPAUSAL SYMPTOMS
     Dosage: 0.5 (1 IN 1 D), TRANSDERMAL
     Route: 062
     Dates: start: 20040901, end: 20050827
  3. GANATON (ITOPRIDE HYDROCHLORIDE) [Suspect]
     Indication: GASTRITIS
     Dosage: 150 MG (1 IN 1 D), ORAL
     Route: 048
     Dates: start: 20040904, end: 20050827
  4. SELBEX (TEPRENONE) [Concomitant]
  5. METHYCOBAL (MECOBALAMIN) [Concomitant]
  6. ALL OTHER THERAPEUTIC PRODUCTS (ALL OTHER THERAPEUTIC PRODUCTS) [Concomitant]

REACTIONS (10)
  - BLOOD IMMUNOGLOBULIN E INCREASED [None]
  - DISSEMINATED INTRAVASCULAR COAGULATION [None]
  - DRUG INEFFECTIVE [None]
  - EOSINOPHIL COUNT INCREASED [None]
  - FOOD ALLERGY [None]
  - HEPATIC ATROPHY [None]
  - HEPATIC FAILURE [None]
  - HEPATITIS FULMINANT [None]
  - HYPERSENSITIVITY [None]
  - PANCREATITIS ACUTE [None]
